FAERS Safety Report 8198369-8 (Version None)
Quarter: 2012Q1

REPORT INFORMATION
  Report Type: 
  Country: None (occurrence: None)
  Receive Date: 20120309
  Receipt Date: 20120305
  Transmission Date: 20120608
  Serious: Yes (Hospitalization)
  Sender: FDA-Public Use
  Company Number: PHHY2012DE019982

PATIENT
  Age: 37 Year
  Sex: Female

DRUGS (10)
  1. LORAZEPAM [Concomitant]
     Dosage: 0.5 MG, UNK
     Route: 048
     Dates: start: 20111013, end: 20111017
  2. TEGRETOL [Suspect]
     Dosage: 200 MG DAILY
     Route: 048
     Dates: start: 20111005, end: 20111006
  3. TEGRETOL [Suspect]
     Dosage: 200 MG, UNK
     Route: 048
     Dates: start: 20111017
  4. LORAZEPAM [Concomitant]
     Dosage: 1.5 MG, UNK
     Route: 048
     Dates: start: 20111005, end: 20111010
  5. TEGRETOL [Suspect]
     Dosage: 600 MG, UNK
     Route: 048
     Dates: start: 20111014, end: 20111016
  6. LORAZEPAM [Concomitant]
     Dosage: 1 MG, UNK
     Route: 048
     Dates: start: 20111011, end: 20111012
  7. LORAZEPAM [Concomitant]
     Dosage: 3 MG, UNK
     Route: 048
     Dates: start: 20110908, end: 20110920
  8. LORAZEPAM [Concomitant]
     Dosage: 2 MG, UNK
     Route: 048
     Dates: start: 20110922, end: 20111004
  9. TEGRETOL [Suspect]
     Dosage: 300 MG, UNK
     Route: 048
     Dates: start: 20111007, end: 20111013
  10. LORAZEPAM [Concomitant]
     Dosage: 2.5 MG, UNK
     Route: 048
     Dates: start: 20110921, end: 20110921

REACTIONS (5)
  - EYE PAIN [None]
  - EYELID OEDEMA [None]
  - HEADACHE [None]
  - ABNORMAL SENSATION IN EYE [None]
  - NAUSEA [None]
